FAERS Safety Report 4591062-X (Version None)
Quarter: 2005Q1

REPORT INFORMATION
  Report Type: 
  Country: None (occurrence: None)
  Receive Date: 20050222
  Receipt Date: 20050222
  Transmission Date: 20050727
  Serious: Yes (Hospitalization)
  Sender: FDA-Public Use
  Company Number: None

PATIENT
  Age: 54 Year
  Sex: Female

DRUGS (15)
  1. TENOFOVIR [Suspect]
     Indication: HIV INFECTION
     Dosage: 300 MG BID ORAL
     Route: 048
     Dates: start: 20030101, end: 20041011
  2. ZIAGEN [Concomitant]
  3. COMBIVIR [Concomitant]
  4. NORVIR [Concomitant]
  5. REYATAZ [Concomitant]
  6. PRAVACHOL [Concomitant]
  7. AVANDIA [Concomitant]
  8. PROVENTIL [Concomitant]
  9. ATROVENT [Concomitant]
  10. SINGULAIR [Concomitant]
  11. SENOKOT [Concomitant]
  12. AMBIEN [Concomitant]
  13. NOVOLIN [Concomitant]
  14. PLAVIX [Concomitant]
  15. FLOVENT [Concomitant]

REACTIONS (1)
  - RENAL FAILURE ACUTE [None]
